FAERS Safety Report 6903109-3 (Version None)
Quarter: 2010Q3

REPORT INFORMATION
  Report Type: 
  Country: None (occurrence: None)
  Receive Date: 20100803
  Receipt Date: 20080609
  Transmission Date: 20110219
  Serious: No
  Sender: FDA-Public Use
  Company Number: US-PFIZER INC-2008049068

PATIENT
  Sex: Female
  Weight: 81.6 kg

DRUGS (7)
  1. LYRICA [Suspect]
     Indication: MYALGIA
     Dates: start: 20080603, end: 20080605
  2. LYRICA [Suspect]
     Indication: PAIN IN EXTREMITY
  3. OXYCODONE [Concomitant]
     Indication: PAIN
  4. PREDNISONE [Concomitant]
     Indication: POLYMYALGIA RHEUMATICA
  5. SYNTHROID [Concomitant]
     Indication: THYROID DISORDER
  6. ESTRATEST H.S. [Concomitant]
     Indication: HORMONE REPLACEMENT THERAPY
  7. ALPRAZOLAM [Concomitant]

REACTIONS (10)
  - ASTHENIA [None]
  - BLOOD PRESSURE ORTHOSTATIC DECREASED [None]
  - DIZZINESS POSTURAL [None]
  - DYSPNOEA [None]
  - HEART RATE INCREASED [None]
  - IMPAIRED DRIVING ABILITY [None]
  - LETHARGY [None]
  - SEDATION [None]
  - SOMNOLENCE [None]
  - WRONG TECHNIQUE IN DRUG USAGE PROCESS [None]
